FAERS Safety Report 5278753-2 (Version None)
Quarter: 2007Q1

REPORT INFORMATION
  Report Type: 
  Country: None (occurrence: None)
  Receive Date: 20070328
  Receipt Date: 20070322
  Transmission Date: 20070707
  Serious: Yes (Hospitalization, Other)
  Sender: FDA-Public Use
  Company Number: ITWYE612321NOV06

PATIENT
  Age: 29 Year
  Sex: Male

DRUGS (8)
  1. RAPAMUNE [Suspect]
     Indication: IMMUNOSUPPRESSION
     Route: 048
     Dates: start: 20030801, end: 20070207
  2. RAPAMUNE [Suspect]
     Route: 048
     Dates: start: 20070208, end: 20070217
  3. RAPAMUNE [Suspect]
     Dosage: 1-2 MG EVERY OTHER DAY
     Route: 048
     Dates: start: 20070218
  4. CELLCEPT [Suspect]
     Dosage: NOT PROVIDED
     Dates: start: 20040401, end: 20051101
  5. CELLCEPT [Suspect]
     Route: 048
     Dates: start: 20051104
  6. DELTACORTENE [Suspect]
     Indication: IMMUNOSUPPRESSION
     Route: 048
     Dates: start: 20031101, end: 20041101
  7. DELTACORTENE [Suspect]
     Route: 048
     Dates: start: 20060101, end: 20070207
  8. DELTACORTENE [Suspect]
     Dates: start: 20070208

REACTIONS (8)
  - ACNE [None]
  - ALOPECIA EFFLUVIUM [None]
  - ANAEMIA [None]
  - APHTHOUS STOMATITIS [None]
  - FEELING ABNORMAL [None]
  - HIP ARTHROPLASTY [None]
  - KIDNEY TRANSPLANT REJECTION [None]
  - RENAL TRANSPLANT [None]
